FAERS Safety Report 12395788 (Version 1)
Quarter: 2016Q2

REPORT INFORMATION
  Report Type: Spontaneous
  Country: US (occurrence: US)
  Receive Date: 20160523
  Receipt Date: 20160523
  Transmission Date: 20160815
  Serious: No
  Sender: FDA-Public Use
  Company Number: US-BION-20160002

PATIENT
  Age: 45 Year
  Sex: Female
  Weight: 76.2 kg

DRUGS (1)
  1. IBUPROFEN CAPSULES, 200 MG [Suspect]
     Active Substance: IBUPROFEN
     Route: 048
     Dates: start: 20160311, end: 20160312

REACTIONS (1)
  - Oral discomfort [Recovered/Resolved]

NARRATIVE: CASE EVENT DATE: 20160311
